FAERS Safety Report 18400399 (Version 1)
Quarter: 2020Q4

REPORT INFORMATION
  Report Type: Spontaneous
  Country: US (occurrence: US)
  Receive Date: 20201019
  Receipt Date: 20201019
  Transmission Date: 20210114
  Serious: No
  Sender: FDA-Public Use
  Company Number: US-ALLERGAN-2035480US

PATIENT
  Age: 26 Year
  Sex: Female

DRUGS (2)
  1. VRAYLAR [Suspect]
     Active Substance: CARIPRAZINE
     Dosage: 3 MG, QD
     Route: 048
  2. VRAYLAR [Suspect]
     Active Substance: CARIPRAZINE
     Indication: BIPOLAR I DISORDER
     Dosage: 4.5 MG, QD
     Route: 048

REACTIONS (6)
  - Extrapyramidal disorder [Unknown]
  - Anxiety [Unknown]
  - Intentional product use issue [Unknown]
  - Irritability [Unknown]
  - Bipolar disorder [Recovering/Resolving]
  - Akathisia [Recovering/Resolving]
